FAERS Safety Report 8963726 (Version 1)
Quarter: 2012Q4

REPORT INFORMATION
  Report Type: 
  Country: US (occurrence: US)
  Receive Date: 20121213
  Receipt Date: 20121213
  Transmission Date: 20130627
  Serious: Yes (Other)
  Sender: FDA-Public Use
  Company Number: US-BRISTOL-MYERS SQUIBB COMPANY-17189242

PATIENT
  Age: 52 Year
  Sex: Female
  Weight: 81.63 kg

DRUGS (4)
  1. TAXOL [Suspect]
     Indication: BREAST CANCER
     Dosage: May and Jun2010. 4 sessions of taxol
     Dates: start: 201005
  2. TAMOXIFEN [Suspect]
  3. FLUOXETINE [Suspect]
  4. WELLBUTRIN XL [Suspect]

REACTIONS (3)
  - Malignant neoplasm progression [Unknown]
  - Neutrophil count increased [Unknown]
  - Thyroid disorder [Unknown]
